FAERS Safety Report 12074264 (Version 1)
Quarter: 2016Q1

REPORT INFORMATION
  Report Type: Report from Study
  Country: US (occurrence: US)
  Receive Date: 20160212
  Receipt Date: 20160212
  Transmission Date: 20160526
  Serious: Yes (Other)
  Sender: FDA-Public Use
  Company Number: US-AMGEN-USASL2016014455

PATIENT
  Sex: Female

DRUGS (1)
  1. ENBREL [Suspect]
     Active Substance: ETANERCEPT
     Indication: PSORIATIC ARTHROPATHY
     Dosage: 50 MG, QWK
     Route: 065

REACTIONS (6)
  - Joint swelling [Unknown]
  - Temperature intolerance [Unknown]
  - Finger repair operation [Recovered/Resolved]
  - Ligament disorder [Recovered/Resolved]
  - Pain in extremity [Unknown]
  - Limb discomfort [Unknown]
